FAERS Safety Report 5227103-6 (Version None)
Quarter: 2007Q1

REPORT INFORMATION
  Report Type: 
  Country: None (occurrence: None)
  Receive Date: 20070201
  Receipt Date: 20070201
  Transmission Date: 20070707
  Serious: Yes (Other)
  Sender: FDA-Public Use
  Company Number: None

PATIENT
  Age: 71 Year
  Sex: Female

DRUGS (1)
  1. IRON DEXTRAN [Suspect]
     Indication: IRON DEFICIENCY ANAEMIA
     Dosage: 17MGIV X 1
     Route: 042
     Dates: start: 20061215, end: 20061215

REACTIONS (4)
  - ABDOMINAL PAIN [None]
  - BACK PAIN [None]
  - RASH [None]
  - SWELLING FACE [None]
